FAERS Safety Report 6963652-8 (Version None)
Quarter: 2010Q3

REPORT INFORMATION
  Report Type: 
  Country: None (occurrence: None)
  Receive Date: 20100902
  Receipt Date: 20100826
  Transmission Date: 20110219
  Serious: Yes (Life-Threatening, Hospitalization)
  Sender: FDA-Public Use
  Company Number: FR-ABBOTT-10P-056-0666385-00

PATIENT
  Sex: Female

DRUGS (3)
  1. HUMIRA [Suspect]
     Indication: SPONDYLITIS
     Route: 058
     Dates: start: 20100201, end: 20100620
  2. PROTELOS [Suspect]
     Indication: OSTEOPOROSIS
     Route: 048
     Dates: start: 20091101, end: 20100201
  3. PROTELOS [Suspect]
     Route: 048
     Dates: start: 20100501, end: 20100620

REACTIONS (4)
  - CARDIAC ANEURYSM [None]
  - MALAISE [None]
  - PULMONARY EMBOLISM [None]
  - VENTRICULAR EXTRASYSTOLES [None]
